FAERS Safety Report 5839537-7 (Version None)
Quarter: 2008Q3

REPORT INFORMATION
  Report Type: 
  Country: None (occurrence: None)
  Receive Date: 20080811
  Receipt Date: 20080731
  Transmission Date: 20090109
  Serious: Yes (Death)
  Sender: FDA-Public Use
  Company Number: GB-RANBAXY-2008RR-16903

PATIENT

DRUGS (2)
  1. ACETAMINOPHEN [Suspect]
     Dosage: 7.5 G, UNK
  2. ALCOHOL [Suspect]

REACTIONS (2)
  - HEPATOTOXICITY [None]
  - OVERDOSE [None]
